FAERS Safety Report 25345104 (Version 1)
Quarter: 2025Q2

REPORT INFORMATION
  Report Type: Report from Study
  Country: US (occurrence: US)
  Receive Date: 20250522
  Receipt Date: 20250522
  Transmission Date: 20250716
  Serious: Yes (Other)
  Sender: UCB
  Company Number: US-UCBSA-2024037165

PATIENT
  Age: 13 Year
  Sex: Male
  Weight: 35.8 kg

DRUGS (2)
  1. FINTEPLA [Suspect]
     Active Substance: FENFLURAMINE
     Indication: Lennox-Gastaut syndrome
     Dosage: 4.5 MILLILITER, 2X/DAY (BID)
     Dates: start: 20230302
  2. FINTEPLA [Suspect]
     Active Substance: FENFLURAMINE
     Dosage: 4.5 MILLILITER, 2X/DAY (BID)

REACTIONS (6)
  - Pulmonary hypertension [Not Recovered/Not Resolved]
  - Right atrial dilatation [Unknown]
  - Right ventricular dilatation [Unknown]
  - Right ventricular hypertrophy [Unknown]
  - Right ventricular systolic pressure increased [Unknown]
  - Right atrial enlargement [Unknown]

NARRATIVE: CASE EVENT DATE: 20241115
